FAERS Safety Report 24167785 (Version 1)
Quarter: 2024Q3

REPORT INFORMATION
  Report Type: Spontaneous
  Country: US (occurrence: US)
  Receive Date: 20240802
  Receipt Date: 20240802
  Transmission Date: 20241017
  Serious: Yes (Other)
  Sender: PFIZER
  Company Number: US-PFIZER INC-202400226822

PATIENT
  Sex: Male

DRUGS (2)
  1. ENCORAFENIB [Suspect]
     Active Substance: ENCORAFENIB
     Indication: Lung neoplasm malignant
     Dosage: UNK
     Dates: start: 20240419, end: 20240718
  2. BINIMETINIB [Suspect]
     Active Substance: BINIMETINIB
     Indication: Lung neoplasm malignant
     Dosage: UNK
     Dates: start: 20240419, end: 20240718

REACTIONS (4)
  - Colitis ulcerative [Recovering/Resolving]
  - Crohn^s disease [Recovering/Resolving]
  - Abdominal pain [Recovering/Resolving]
  - Anaemia [Recovering/Resolving]

NARRATIVE: CASE EVENT DATE: 20240718
